FAERS Safety Report 11258107 (Version 1)
Quarter: 2015Q3

REPORT INFORMATION
  Report Type: Spontaneous
  Country: US (occurrence: None)
  Receive Date: 20150708
  Receipt Date: 20150708
  Transmission Date: 20151125
  Serious: Yes (Other)
  Sender: FDA-Public Use
  Company Number: 2015HINSPO0540

PATIENT
  Sex: Female

DRUGS (1)
  1. ACYCLOVIR (ACYCLOVIR) TABLET, 400MG [Suspect]
     Active Substance: ACYCLOVIR
     Indication: PRODUCT USED FOR UNKNOWN INDICATION
     Dates: start: 20150606, end: 20150610

REACTIONS (15)
  - Vision blurred [None]
  - Urine output increased [None]
  - Headache [None]
  - Sensation of blood flow [None]
  - Ocular hyperaemia [None]
  - Fatigue [None]
  - Eyelid margin crusting [None]
  - Pain in extremity [None]
  - Coeliac disease [None]
  - Rash [None]
  - Constipation [None]
  - Eye pain [None]
  - Feeling abnormal [None]
  - Epistaxis [None]
  - Insomnia [None]
